FAERS Safety Report 5362043-3 (Version None)
Quarter: 2007Q3

REPORT INFORMATION
  Report Type: 
  Country: None (occurrence: None)
  Receive Date: 20070615
  Receipt Date: 20070615
  Transmission Date: 20080115
  Serious: Yes (Life-Threatening, Hospitalization, Disabling, Other)
  Sender: FDA-Public Use
  Company Number: None

PATIENT
  Age: 27 Year
  Sex: Female
  Weight: 56.6996 kg

DRUGS (3)
  1. ORTHO TRI-CYCLEN [Suspect]
     Indication: CONTRACEPTION
     Dosage: 21 DAY REGIMEN  1 X DAY PO
     Route: 048
     Dates: start: 20000101, end: 20070401
  2. YAZ [Suspect]
     Indication: CONTRACEPTION
     Dosage: 24 DAY REGIMEN   1 X DAY  PO
     Route: 048
     Dates: start: 20070401, end: 20070501
  3. PROZAC [Concomitant]

REACTIONS (2)
  - PAIN [None]
  - PULMONARY EMBOLISM [None]
